FAERS Safety Report 23687086 (Version 2)
Quarter: 2024Q2

REPORT INFORMATION
  Report Type: Report from Study
  Country: EG (occurrence: EG)
  Receive Date: 20240329
  Receipt Date: 20240404
  Transmission Date: 20240716
  Serious: No
  Sender: FDA-Public Use
  Company Number: EG-SANDOZ-SDZ2024EG030371

PATIENT
  Age: 12 Year
  Sex: Female
  Weight: 37 kg

DRUGS (1)
  1. OMNITROPE [Suspect]
     Active Substance: SOMATROPIN
     Indication: Growth hormone deficiency
     Dosage: 1 MG/DAY, 10 MG, 1.5 CM DAILY
     Route: 058
     Dates: start: 20230321

REACTIONS (5)
  - Decreased appetite [Unknown]
  - Medication error [Unknown]
  - Wrong technique in product usage process [Unknown]
  - Drug dose omission by device [Unknown]
  - Device defective [Unknown]

NARRATIVE: CASE EVENT DATE: 20230321
